FAERS Safety Report 9687796 (Version 2)
Quarter: 2014Q1

REPORT INFORMATION
  Report Type: Spontaneous
  Country: US (occurrence: US)
  Receive Date: 20131114
  Receipt Date: 20140314
  Transmission Date: 20141002
  Serious: No
  Sender: FDA-Public Use
  Company Number: US-PFIZER INC-2013320341

PATIENT
  Sex: Female

DRUGS (4)
  1. EFFEXOR XR [Suspect]
     Dosage: 37.5 MG, UNK
  2. EFFEXOR XR [Suspect]
     Dosage: 150 MG, UNK
  3. EFFEXOR XR [Suspect]
     Dosage: 187.5 MG, UNK
  4. EFFEXOR XR [Suspect]
     Dosage: 225 MG, UNK

REACTIONS (2)
  - Anxiety [Unknown]
  - Drug ineffective [Unknown]
